FAERS Safety Report 6337773-7 (Version None)
Quarter: 2009Q3

REPORT INFORMATION
  Report Type: 
  Country: None (occurrence: None)
  Receive Date: 20090902
  Receipt Date: 20090824
  Transmission Date: 20100115
  Serious: Yes (Other)
  Sender: FDA-Public Use
  Company Number: US-ASTRAZENECA-2009SE09538

PATIENT
  Age: 60 Year
  Sex: Female

DRUGS (6)
  1. CRESTOR [Suspect]
     Route: 048
  2. CRESTOR [Suspect]
     Route: 048
  3. CRESTOR [Suspect]
     Route: 048
  4. LANTUS [Concomitant]
  5. PREMARIN [Concomitant]
     Dosage: .625
  6. METFORMIN HCL [Concomitant]

REACTIONS (1)
  - GLYCOSYLATED HAEMOGLOBIN INCREASED [None]
